FAERS Safety Report 6881890-X (Version None)
Quarter: 2010Q3

REPORT INFORMATION
  Report Type: 
  Country: None (occurrence: None)
  Receive Date: 20100727
  Receipt Date: 20100719
  Transmission Date: 20110219
  Serious: Yes (Other)
  Sender: FDA-Public Use
  Company Number: 2010SP034564

PATIENT
  Age: 66 Year
  Sex: Female

DRUGS (1)
  1. SAPHRIS [Suspect]
     Indication: HALLUCINATION
     Dosage: 5 MG; QD; SL
     Route: 060
     Dates: start: 20100520, end: 20100527

REACTIONS (1)
  - SWELLING FACE [None]
